FAERS Safety Report 17079825 (Version 1)
Quarter: 2019Q4

REPORT INFORMATION
  Report Type: Spontaneous
  Country: US (occurrence: US)
  Receive Date: 20191127
  Receipt Date: 20191127
  Transmission Date: 20200122
  Serious: No
  Sender: FDA-Public Use
  Company Number: US-AUROBINDO-AUR-APL-2019-027323

PATIENT

DRUGS (1)
  1. GABAPENTIN TABLETS [Suspect]
     Active Substance: GABAPENTIN
     Indication: NEURALGIA
     Route: 065

REACTIONS (7)
  - Insomnia [Unknown]
  - Constipation [Unknown]
  - Product substitution issue [Unknown]
  - Aggression [Unknown]
  - Tremor [Unknown]
  - Depression [Unknown]
  - Restlessness [Unknown]
